FAERS Safety Report 4870151-6 (Version None)
Quarter: 2005Q4

REPORT INFORMATION
  Report Type: 
  Country: None (occurrence: None)
  Receive Date: 20051229
  Receipt Date: 20051229
  Transmission Date: 20060501
  Serious: No
  Sender: FDA-Public Use
  Company Number: None

PATIENT
  Age: 40 Year
  Sex: Female
  Weight: 79.3795 kg

DRUGS (1)
  1. PAROXETINE HCL [Suspect]
     Indication: ANXIETY
     Dosage: 40 MG   1X DAY   PO
     Route: 048
     Dates: start: 20041001, end: 20051229

REACTIONS (9)
  - BALANCE DISORDER [None]
  - DRUG WITHDRAWAL SYNDROME [None]
  - DRY MOUTH [None]
  - EATING DISORDER [None]
  - FEELING ABNORMAL [None]
  - FEELING DRUNK [None]
  - WEIGHT INCREASED [None]
  - WEIGHT LOSS POOR [None]
  - YAWNING [None]
